FAERS Safety Report 9272782 (Version 4)
Quarter: 2013Q4

REPORT INFORMATION
  Report Type: Spontaneous
  Country: US (occurrence: US)
  Receive Date: 20130506
  Receipt Date: 20131008
  Transmission Date: 20140711
  Serious: Yes (Other)
  Sender: FDA-Public Use
  Company Number: US-PFIZER INC-2013140035

PATIENT
  Age: 25 Year
  Sex: Female

DRUGS (18)
  1. IBUPROFEN [Suspect]
     Dosage: UNK
     Route: 065
  2. TOPAMAX [Suspect]
     Indication: MIGRAINE
     Dosage: 25 MG TABLET DAILY
     Route: 048
     Dates: start: 20060803, end: 20060813
  3. TOPAMAX [Suspect]
     Dosage: 50 MG ONCE DAILY AT BEDTIME
     Route: 048
     Dates: start: 20060828
  4. TOPAMAX [Suspect]
     Dosage: 25 MG ONCE DAILY
     Route: 048
     Dates: start: 20061101, end: 20061110
  5. TOPAMAX [Suspect]
     Dosage: 25 MG, 2 DAILY
     Route: 048
     Dates: start: 20061218
  6. TOPAMAX [Suspect]
     Dosage: 50 MG 1 TABLET AT BEDTIME
     Route: 048
     Dates: start: 20070127
  7. BENADRYL [Suspect]
     Indication: ANTIALLERGIC THERAPY
     Dosage: UNK
     Route: 065
  8. COMPAZINE [Suspect]
     Indication: NAUSEA
     Dosage: UNK
  9. CLOBETASOL [Suspect]
     Indication: STEROID THERAPY
     Dosage: UNK
     Route: 061
  10. ALBUTEROL [Concomitant]
     Indication: ASTHMA
     Dosage: 90 UG, DAILY
     Dates: start: 20061107, end: 200711
  11. CYCLOBENZAPRINE [Concomitant]
     Indication: HEADACHE
     Dosage: 10 MG, UNK
     Dates: start: 20070410
  12. COMBIVENT [Concomitant]
     Indication: ASTHMA
     Dosage: UNK
     Dates: start: 20061116, end: 20061126
  13. COMBIVENT [Concomitant]
     Indication: RESPIRATORY TRACT INFECTION
     Dosage: UNK
     Dates: start: 20080710
  14. COMBIVENT [Concomitant]
     Indication: ANTASTHMATIC DRUG LEVEL
  15. AMOXICILLIN [Concomitant]
     Indication: RESPIRATORY TRACT INFECTION
     Route: 048
  16. KETEK [Concomitant]
     Indication: RESPIRATORY TRACT INFECTION
     Dosage: 400 MG, 2X/DAY
     Route: 048
     Dates: start: 20061107, end: 20061117
  17. EFFEXOR XR [Concomitant]
     Indication: DEPRESSION
     Dosage: 75 MG, 1X/DAY
     Route: 065
     Dates: start: 20040928
  18. EFFEXOR XR [Concomitant]
     Dosage: 75 MG, 1X/DAY
     Route: 065
     Dates: start: 20060315, end: 200702

REACTIONS (5)
  - Postpartum depression [Unknown]
  - Exposure during pregnancy [Recovered/Resolved]
  - Anxiety [Recovering/Resolving]
  - Stress [Recovering/Resolving]
  - Feeling guilty [Unknown]
